FAERS Safety Report 18563327 (Version 1)
Quarter: 2020Q4

REPORT INFORMATION
  Report Type: Other
  Country: CA (occurrence: CA)
  Receive Date: 20201201
  Receipt Date: 20201201
  Transmission Date: 20210114
  Serious: Yes (Hospitalization)
  Sender: FDA-Public Use
  Company Number: CA-CELLTRION INC.-2020CA032699

PATIENT

DRUGS (12)
  1. RITUXIMAB (UNKNOWN) [Suspect]
     Active Substance: RITUXIMAB
     Indication: RHEUMATOID ARTHRITIS
     Dosage: 1000 MILLIGRAM
     Route: 042
  2. FOLIC ACID. [Concomitant]
     Active Substance: FOLIC ACID
  3. HYDROXYCHLOROQUINE SULFATE. [Concomitant]
     Active Substance: HYDROXYCHLOROQUINE SULFATE
  4. NAPROXEN. [Concomitant]
     Active Substance: NAPROXEN
  5. METHYLPREDNISOLONE SODIUM SUCCINATE. [Concomitant]
     Active Substance: METHYLPREDNISOLONE SODIUM SUCCINATE
  6. TYLENOL [Concomitant]
     Active Substance: ACETAMINOPHEN
  7. BENADRYL [Concomitant]
     Active Substance: DIPHENHYDRAMINE HYDROCHLORIDE
  8. SYNTHROID [Concomitant]
     Active Substance: LEVOTHYROXINE SODIUM
  9. BETAMETHASONE DIPROPIONATE;SALICYLIC ACID [Concomitant]
  10. CALCIUM [Concomitant]
     Active Substance: CALCIUM
  11. METFORMIN [Concomitant]
     Active Substance: METFORMIN HYDROCHLORIDE
     Route: 065
  12. METHOTREXATE. [Concomitant]
     Active Substance: METHOTREXATE
     Route: 058

REACTIONS (5)
  - Blood pressure decreased [Recovered/Resolved]
  - Blood pressure systolic increased [Recovered/Resolved]
  - White blood cell count increased [Recovered/Resolved]
  - Blood pressure fluctuation [Recovered/Resolved]
  - Infection [Recovered/Resolved]
